FAERS Safety Report 24614915 (Version 1)
Quarter: 2024Q4

REPORT INFORMATION
  Report Type: Spontaneous
  Country: AU (occurrence: AU)
  Receive Date: 20241113
  Receipt Date: 20241113
  Transmission Date: 20250115
  Serious: Yes (Other)
  Sender: ALEXION PHARMACEUTICALS
  Company Number: AU-AstraZeneca-CH-00741064A

PATIENT

DRUGS (8)
  1. IRESSA [Suspect]
     Active Substance: GEFITINIB
     Indication: EGFR gene mutation
     Dosage: UNK
  2. IRESSA [Suspect]
     Active Substance: GEFITINIB
     Dosage: UNK
  3. IRESSA [Suspect]
     Active Substance: GEFITINIB
     Dosage: UNK
  4. IRESSA [Suspect]
     Active Substance: GEFITINIB
     Dosage: UNK
  5. TAGRISSO [Suspect]
     Active Substance: OSIMERTINIB
     Indication: Non-small cell lung cancer metastatic
     Dosage: 160 MILLIGRAM
  6. TAGRISSO [Suspect]
     Active Substance: OSIMERTINIB
     Dosage: 160 MILLIGRAM
  7. TAGRISSO [Suspect]
     Active Substance: OSIMERTINIB
     Dosage: 160 MILLIGRAM
  8. TAGRISSO [Suspect]
     Active Substance: OSIMERTINIB
     Dosage: 160 MILLIGRAM

REACTIONS (2)
  - Diarrhoea [Unknown]
  - Malignant neoplasm progression [Unknown]
